FAERS Safety Report 18267536 (Version 1)
Quarter: 2020Q3

REPORT INFORMATION
  Report Type: Spontaneous
  Country: US (occurrence: US)
  Receive Date: 20200915
  Receipt Date: 20200915
  Transmission Date: 20201103
  Serious: Yes (Other)
  Sender: FDA-Public Use
  Company Number: None

PATIENT
  Age: 50 Year
  Sex: Male
  Weight: 90 kg

DRUGS (3)
  1. TERFINABINE [Suspect]
     Active Substance: TERBINAFINE HYDROCHLORIDE
     Indication: DERMATOPHYTOSIS OF NAIL
     Route: 048
     Dates: start: 20200908, end: 20200909
  2. FULCONAZOLE [Concomitant]
     Dates: start: 20200630, end: 20200907
  3. TERFINABINE [Suspect]
     Active Substance: TERBINAFINE HYDROCHLORIDE
     Indication: TINEA VERSICOLOUR
     Route: 048
     Dates: start: 20200908, end: 20200909

REACTIONS (2)
  - Rash pruritic [None]
  - Papule [None]

NARRATIVE: CASE EVENT DATE: 20200914
